FAERS Safety Report 20028145 (Version 1)
Quarter: 2021Q4

REPORT INFORMATION
  Report Type: Spontaneous
  Country: US (occurrence: None)
  Receive Date: 20211103
  Receipt Date: 20211103
  Transmission Date: 20220303
  Serious: Yes (Other)
  Sender: FDA-Public Use
  Company Number: US-ROCHE-2947108

PATIENT
  Age: 66 Year
  Sex: Female
  Weight: 90.7 kg

DRUGS (3)
  1. ACTEMRA [Suspect]
     Active Substance: TOCILIZUMAB
     Indication: COVID-19
     Route: 042
     Dates: start: 20211020, end: 20211020
  2. REMDESIVIR [Concomitant]
     Active Substance: REMDESIVIR
     Dates: start: 20211018, end: 20211025
  3. DEXAMETHASONE [Concomitant]
     Active Substance: DEXAMETHASONE

REACTIONS (3)
  - Diverticulitis intestinal perforated [Unknown]
  - Diverticulitis [Unknown]
  - Off label use [Unknown]

NARRATIVE: CASE EVENT DATE: 20211026
